FAERS Safety Report 15807953 (Version 1)
Quarter: 2019Q1

REPORT INFORMATION
  Report Type: Spontaneous
  Country: FR (occurrence: FR)
  Receive Date: 20190110
  Receipt Date: 20190110
  Transmission Date: 20190417
  Serious: Yes (Other)
  Sender: FDA-Public Use
  Company Number: FR-PFIZER INC-2019009227

PATIENT
  Age: 33 Year
  Sex: Female

DRUGS (5)
  1. CANNABIS [Suspect]
     Active Substance: CANNABIS SATIVA SUBSP. INDICA TOP
     Indication: DRUG ABUSE
     Dosage: UNK
     Route: 055
     Dates: start: 1998
  2. COCAINE [Suspect]
     Active Substance: COCAINE
     Indication: DRUG ABUSE
     Dosage: UNK
     Route: 065
     Dates: start: 2005
  3. ALPRAZOLAM. [Suspect]
     Active Substance: ALPRAZOLAM
     Dosage: 0.75 MG, 1X/DAY
     Route: 048
     Dates: start: 2016
  4. STILNOX [Suspect]
     Active Substance: ZOLPIDEM TARTRATE
     Dosage: 20 MG, 1X/DAY
     Route: 048
     Dates: start: 2016
  5. METHADONE AP HP [Suspect]
     Active Substance: METHADONE HYDROCHLORIDE
     Dosage: 40 MG, 1X/DAY
     Route: 048
     Dates: start: 2011

REACTIONS (3)
  - Drug dependence [Not Recovered/Not Resolved]
  - Drug abuse [Not Recovered/Not Resolved]
  - Drug dependence [Not Recovered/Not Resolved]

NARRATIVE: CASE EVENT DATE: 1998
